FAERS Safety Report 11954679 (Version 2)
Quarter: 2016Q1

REPORT INFORMATION
  Report Type: Report from Study
  Country: US (occurrence: US)
  Receive Date: 20160126
  Receipt Date: 20160202
  Transmission Date: 20160526
  Serious: No
  Sender: FDA-Public Use
  Company Number: US-ABBVIE-15K-163-1366169-00

PATIENT
  Age: 58 Year
  Sex: Female
  Weight: 65.38 kg

DRUGS (7)
  1. LIOTHYRONINE [Concomitant]
     Active Substance: LIOTHYRONINE
     Indication: PRODUCT USED FOR UNKNOWN INDICATION
  2. LISINOPRIL. [Concomitant]
     Active Substance: LISINOPRIL
     Indication: PRODUCT USED FOR UNKNOWN INDICATION
  3. LEVOTHYROXINE. [Concomitant]
     Active Substance: LEVOTHYROXINE
     Indication: PRODUCT USED FOR UNKNOWN INDICATION
  4. HUMIRA [Suspect]
     Active Substance: ADALIMUMAB
     Indication: ANKYLOSING SPONDYLITIS
     Route: 058
     Dates: start: 20141223
  5. CLONIDINE HCL [Concomitant]
     Active Substance: CLONIDINE HYDROCHLORIDE
     Indication: PRODUCT USED FOR UNKNOWN INDICATION
  6. LANSOPRAZOLE. [Concomitant]
     Active Substance: LANSOPRAZOLE
     Indication: PRODUCT USED FOR UNKNOWN INDICATION
  7. CELEBREX [Concomitant]
     Active Substance: CELECOXIB
     Indication: PRODUCT USED FOR UNKNOWN INDICATION

REACTIONS (7)
  - Wrong technique in product usage process [Recovered/Resolved]
  - Incorrect dose administered [Unknown]
  - Peripheral swelling [Recovering/Resolving]
  - Erythema [Recovering/Resolving]
  - Infection [Recovering/Resolving]
  - Joint swelling [Unknown]
  - Weight increased [Unknown]

NARRATIVE: CASE EVENT DATE: 20150226
